FAERS Safety Report 9924649 (Version 4)
Quarter: 2014Q2

REPORT INFORMATION
  Report Type: Spontaneous
  Country: US (occurrence: US)
  Receive Date: 20140226
  Receipt Date: 20140612
  Transmission Date: 20141212
  Serious: No
  Sender: FDA-Public Use
  Company Number: US-PFIZER INC-2014054374

PATIENT
  Age: 56 Year
  Sex: Female
  Weight: 79.37 kg

DRUGS (16)
  1. EFFEXOR [Suspect]
     Indication: DEPRESSION
     Dosage: 75 MG, 1X/DAY
     Route: 048
  2. EFFEXOR [Suspect]
     Indication: HOT FLUSH
     Dosage: 150 MG, 1X/DAY
     Route: 048
     Dates: end: 20140113
  3. EFFEXOR [Suspect]
     Indication: MOOD ALTERED
  4. ZOLOFT [Concomitant]
     Dosage: UNK
  5. LYRICA [Concomitant]
     Dosage: 100 MG ONE TABLET IN THE MORNING AND 50 MG IN THE EVENING
  6. CLONIDINE [Concomitant]
     Indication: HYPERTENSION
     Dosage: 0.2 MG, (ONE TABLET EVERY AM)
  7. COUMADINE [Concomitant]
     Indication: COAGULATION FACTOR V LEVEL ABNORMAL
     Dosage: UNK
  8. LUMIGAN [Concomitant]
     Dosage: 1 DF, (1 DROP BOTH EYES AT BEDTIME)
     Route: 047
  9. MAGNESIUM [Concomitant]
     Dosage: 1 DF, DAILY
  10. VITAMIN B12 [Concomitant]
     Dosage: UNK
  11. FOLATE [Concomitant]
     Dosage: UNK
  12. DEMEROL [Concomitant]
     Indication: PAIN
     Dosage: 50 MG, AS NEEDED, (EVERY SIX HOURS)
  13. VITAMIN D [Concomitant]
     Dosage: 4,000 INTERNATIONAL UNITS ONE TABLET EVERY DAY
  14. TRAMADOL [Concomitant]
     Dosage: 50 MG, (ONE TO TWO TABS EVERY EIGHT HOURS AS NEEDED)
  15. LIPITOR [Concomitant]
     Dosage: 10 MG, AT BEDTIME
  16. METOPROLOL [Concomitant]
     Dosage: 25 MG, AT BEDTIME

REACTIONS (5)
  - Off label use [Unknown]
  - Drug ineffective for unapproved indication [Unknown]
  - Dizziness [Unknown]
  - Trigger finger [Unknown]
  - Myositis [Unknown]
